FAERS Safety Report 7804954-2 (Version None)
Quarter: 2011Q4

REPORT INFORMATION
  Report Type: 
  Country: None (occurrence: None)
  Receive Date: 20111010
  Receipt Date: 20110929
  Transmission Date: 20120403
  Serious: Yes (Other)
  Sender: FDA-Public Use
  Company Number: PHHY2011BR86881

PATIENT
  Age: 45 Year
  Sex: Female
  Weight: 82 kg

DRUGS (10)
  1. ASPIRIN [Suspect]
     Dosage: 200 MG, UNK
  2. CITALOPRAM [Suspect]
     Dosage: 20 MG, UNK
  3. CRESTOR [Suspect]
     Dosage: 20 MG, UNK
  4. ROSUVASTATIN [Concomitant]
     Dosage: 20 MG, DAILY
  5. EXFORGE [Suspect]
     Indication: HYPERTENSION
     Dosage: 160 MG VALS AND 5 MG AMLO
  6. GALVUS MET [Suspect]
     Dosage: 500 MG METF AND 50 MG VILD
  7. METOPROLOL SUCCINATE [Suspect]
     Dosage: 100 MG, UNK
  8. MONOCORDIL [Suspect]
     Dosage: 50 MG/DAY
  9. CILOSTAZOL [Suspect]
     Dosage: 200 MG/DAY
  10. EXFORGE [Suspect]
     Dosage: 320 MG VALS AND 5 MG AMLO

REACTIONS (3)
  - TRANSIENT ISCHAEMIC ATTACK [None]
  - ERYSIPELAS [None]
  - MYOCARDIAL INFARCTION [None]
